FAERS Safety Report 5586046-9 (Version None)
Quarter: 2008Q1

REPORT INFORMATION
  Report Type: 
  Country: None (occurrence: None)
  Receive Date: 20080104
  Receipt Date: 20071226
  Transmission Date: 20080703
  Serious: Yes (Hospitalization)
  Sender: FDA-Public Use
  Company Number: IL-JNJFOC-20071206124

PATIENT

DRUGS (1)
  1. DECITABINE (DECITABINE) LYOPHILIZED POWDER [Suspect]
     Indication: MYELODYSPLASTIC SYNDROME
     Dosage: CYCLE 1
     Dates: end: 20071129

REACTIONS (4)
  - LIVER ABSCESS [None]
  - RENAL ABSCESS [None]
  - SPLENIC ABSCESS [None]
  - SYSTEMIC CANDIDA [None]
